FAERS Safety Report 19650330 (Version 1)
Quarter: 2021Q3

REPORT INFORMATION
  Report Type: Spontaneous
  Country: US (occurrence: US)
  Receive Date: 20210802
  Receipt Date: 20210802
  Transmission Date: 20211014
  Serious: No
  Sender: FDA-Public Use
  Company Number: US-FRESENIUS MEDICAL CARE RENAL THERAPIES GROUP-FMC-2106-000796

PATIENT
  Sex: Female

DRUGS (1)
  1. DELFLEX [Suspect]
     Active Substance: CALCIUM CHLORIDE\DEXTROSE\MAGNESIUM CHLORIDE\SODIUM CHLORIDE\SODIUM LACTATE
     Indication: END STAGE RENAL DISEASE
     Dosage: FILLS = 4; FILL VOLUME = 2,000 ML; LAST FILL VOLUME = 0ML; TOTAL VOLUME = 8,000 ML; TOTAL SLEEP TIME
     Route: 033

REACTIONS (2)
  - Fluid retention [Unknown]
  - Oedema peripheral [Unknown]
